FAERS Safety Report 5075770-2 (Version None)
Quarter: 2006Q3

REPORT INFORMATION
  Report Type: 
  Country: None (occurrence: None)
  Receive Date: 20060809
  Receipt Date: 20051219
  Transmission Date: 20061208
  Serious: No
  Sender: FDA-Public Use
  Company Number: US-AMGEN-KDL162282

PATIENT
  Sex: Female

DRUGS (8)
  1. PROCRIT [Suspect]
     Indication: PRE-EXISTING DISEASE
     Route: 058
     Dates: start: 20051216
  2. PEGASYS [Concomitant]
  3. RIBAVIRIN [Concomitant]
  4. NEXIUM [Concomitant]
  5. TENORETIC 100 [Concomitant]
  6. LORTAB [Concomitant]
  7. VALIUM [Concomitant]
  8. CELEXA [Concomitant]

REACTIONS (3)
  - HEADACHE [None]
  - NAUSEA [None]
  - PHOTOPSIA [None]
